FAERS Safety Report 5254625-4 (Version None)
Quarter: 2007Q1

REPORT INFORMATION
  Report Type: 
  Country: None (occurrence: None)
  Receive Date: 20070302
  Receipt Date: 20070220
  Transmission Date: 20070707
  Serious: Yes (Other)
  Sender: FDA-Public Use
  Company Number: NZ-PFIZER INC-2007014453

PATIENT
  Sex: Female

DRUGS (3)
  1. NEURONTIN [Suspect]
     Indication: CONVULSION
  2. LAMOTRIGINE [Concomitant]
  3. VALIUM [Concomitant]

REACTIONS (5)
  - CONVULSION [None]
  - COORDINATION ABNORMAL [None]
  - DRUG INTOLERANCE [None]
  - INJURY [None]
  - NEURALGIA [None]
